FAERS Safety Report 9218072 (Version 1)
Quarter: 2013Q2

REPORT INFORMATION
  Report Type: Spontaneous
  Country: US (occurrence: US)
  Receive Date: 20130408
  Receipt Date: 20130408
  Transmission Date: 20140414
  Serious: Yes (Other)
  Sender: FDA-Public Use
  Company Number: US-GLAXOSMITHKLINE-A1018074A

PATIENT
  Sex: Male

DRUGS (9)
  1. ADVAIR [Suspect]
     Indication: ASTHMA
     Dosage: 1PUFF PER DAY
     Route: 055
     Dates: start: 2010
  2. PREDNISONE [Suspect]
     Indication: ASTHMA
     Dosage: 20MG ALTERNATE DAYS
     Route: 048
     Dates: start: 2009
  3. ALVESCO [Concomitant]
  4. ALBUTEROL NEBULIZER [Concomitant]
  5. XOPENEX [Concomitant]
  6. LEVOTHYROXINE [Concomitant]
  7. MAXIDE [Concomitant]
  8. METFORMIN [Concomitant]
  9. GLIPIZIDE [Concomitant]

REACTIONS (1)
  - Diabetes mellitus [Not Recovered/Not Resolved]
